FAERS Safety Report 18674756 (Version 1)
Quarter: 2020Q4

REPORT INFORMATION
  Report Type: Spontaneous
  Country: IN (occurrence: IN)
  Receive Date: 20201229
  Receipt Date: 20201229
  Transmission Date: 20210114
  Serious: Yes (Other)
  Sender: FDA-Public Use
  Company Number: IN-SGP-000014

PATIENT
  Age: 8 Year

DRUGS (3)
  1. METHYLPREDNISOLONE. [Suspect]
     Active Substance: METHYLPREDNISOLONE
     Indication: AUTOIMMUNE HAEMOLYTIC ANAEMIA
     Route: 042
  2. POTASSIUM CHLORIDE. [Concomitant]
     Active Substance: POTASSIUM CHLORIDE
     Indication: HYPOKALAEMIA
     Dosage: 2 MMOL/KG/DAY
     Route: 048
  3. POTASSIUM CHLORIDE. [Concomitant]
     Active Substance: POTASSIUM CHLORIDE
     Indication: HYPOKALAEMIA
     Dosage: 5 MMOL/KG
     Route: 048

REACTIONS (2)
  - Bradycardia [Recovered/Resolved]
  - Hypokalaemia [Recovered/Resolved]
